FAERS Safety Report 15387929 (Version 1)
Quarter: 2018Q3

REPORT INFORMATION
  Report Type: Spontaneous
  Country: DE (occurrence: DE)
  Receive Date: 20180915
  Receipt Date: 20180915
  Transmission Date: 20181010
  Serious: Yes (Other)
  Sender: FDA-Public Use
  Company Number: DE-AUROBINDO-AUR-APL-2018-044156

PATIENT
  Age: 74 Year
  Sex: Male
  Weight: 76 kg

DRUGS (2)
  1. RAMIPRIL?ISIS 5 MG TABLETS [Suspect]
     Active Substance: RAMIPRIL
     Indication: HYPERTENSION
     Dosage: 5 MILLIGRAM, DAILY
     Route: 048
     Dates: start: 2015
  2. ASS PROTECTID [Concomitant]
     Indication: PLATELET AGGREGATION INHIBITION
     Dosage: 100 MILLIGRAM
     Route: 048
     Dates: start: 2015

REACTIONS (2)
  - Transient ischaemic attack [Unknown]
  - Blood pressure increased [Unknown]

NARRATIVE: CASE EVENT DATE: 2018
